FAERS Safety Report 9125726 (Version 1)
Quarter: 2013Q1

REPORT INFORMATION
  Report Type: Report from Study
  Country: DE (occurrence: DE)
  Receive Date: 20130227
  Receipt Date: 20130227
  Transmission Date: 20140127
  Serious: Yes (Other)
  Sender: FDA-Public Use
  Company Number: PHHO2012DE018806

PATIENT
  Sex: Female

DRUGS (1)
  1. AMN107 [Suspect]
     Indication: CHRONIC MYELOID LEUKAEMIA
     Dosage: FOETAL DRUG EXPOSURE VIA FATHER

REACTIONS (2)
  - Abortion spontaneous [Unknown]
  - Exposure via father [Unknown]
